FAERS Safety Report 9458481 (Version 1)
Quarter: 2013Q3

REPORT INFORMATION
  Report Type: Spontaneous
  Country: US (occurrence: None)
  Receive Date: 20130812
  Receipt Date: 20130812
  Transmission Date: 20140515
  Serious: Yes (Other)
  Sender: FDA-Public Use
  Company Number: JPI-P-034205

PATIENT
  Age: 28 Year
  Sex: Female
  Weight: 72.58 kg

DRUGS (3)
  1. XYREM (500 MILLIGRAM/MILLILITERS, SOLUTION) (SODIUM OXYBATE) [Suspect]
     Indication: NARCOLEPSY
     Route: 048
  2. ACETAMINOPHEN WITH CODEINE [Suspect]
     Indication: PROCEDURAL PAIN
  3. ACETAMINOPHEN WITH CODEINE [Suspect]
     Indication: SURGERY

REACTIONS (2)
  - Nausea [None]
  - Procedural pain [None]
